FAERS Safety Report 18538471 (Version 3)
Quarter: 2020Q4

REPORT INFORMATION
  Report Type: Other
  Country: JP (occurrence: JP)
  Receive Date: 20201123
  Receipt Date: 20201203
  Transmission Date: 20210114
  Serious: Yes (Other)
  Sender: FDA-Public Use
  Company Number: JP-ROCHE-2717447

PATIENT
  Age: 8 Decade
  Sex: Male

DRUGS (11)
  1. AVASTIN [Suspect]
     Active Substance: BEVACIZUMAB
     Indication: RECTAL CANCER
     Dosage: UNCERTAIN DOSAGE FOR 14 COURSES
     Route: 042
  2. AVASTIN [Suspect]
     Active Substance: BEVACIZUMAB
     Dosage: FROM THE SECOND COURSE WITH UNCERTAIN DOSAGE
     Route: 041
  3. LEVOFOLINATE CALCIUM [Suspect]
     Active Substance: LEVOLEUCOVORIN CALCIUM
     Dosage: UNCERTAIN DOSAGE AT THE FIRST AND SECOND COURSE
     Route: 041
  4. LACOSAMIDE. [Suspect]
     Active Substance: LACOSAMIDE
     Indication: EPILEPSY
     Dosage: DOSAGE IS UNCERTAIN.
     Route: 065
  5. FLUOROURACIL. [Suspect]
     Active Substance: FLUOROURACIL
     Dosage: UNCERTAIN DOSAGE AT THE FIRST AND SECOND COURSE
     Route: 040
  6. LEVOFOLINATE CALCIUM [Suspect]
     Active Substance: LEVOLEUCOVORIN CALCIUM
     Indication: RECTAL CANCER
     Dosage: UNCERTAIN DOSAGE FOR 14 COURSES
     Route: 041
  7. FLUOROURACIL. [Suspect]
     Active Substance: FLUOROURACIL
     Dosage: UNCERTAIN DOSAGE AT THE FIRST AND SECOND COURSE
     Route: 041
  8. IRINOTECAN HYDROCHLORIDE HYDRATE [Suspect]
     Active Substance: IRINOTECAN HYDROCHLORIDE
     Indication: RECTAL CANCER
     Dosage: UNCERTAIN DOSAGE AT THE FIRST AND SECOND COURSE
     Route: 041
  9. FLUOROURACIL. [Suspect]
     Active Substance: FLUOROURACIL
     Indication: RECTAL CANCER
     Dosage: UNCERTAIN DOSAGE FOR 14 COURSES
     Route: 040
  10. OXALIPLATIN. [Concomitant]
     Active Substance: OXALIPLATIN
     Indication: RECTAL CANCER
     Dosage: UNCERTAIN DOSAGE FOR 14 COURSES
     Route: 041
  11. FLUOROURACIL. [Suspect]
     Active Substance: FLUOROURACIL
     Dosage: UNCERTAIN DOSAGE FOR 14 COURSES
     Route: 041

REACTIONS (3)
  - Epilepsy [Unknown]
  - Platelet count decreased [Unknown]
  - Neutropenia [Recovering/Resolving]
